FAERS Safety Report 7545347-5 (Version None)
Quarter: 2011Q2

REPORT INFORMATION
  Report Type: 
  Country: None (occurrence: None)
  Receive Date: 20110524
  Receipt Date: 20110214
  Transmission Date: 20111010
  Serious: No
  Sender: FDA-Public Use
  Company Number: 027588

PATIENT
  Sex: Female

DRUGS (2)
  1. CIMZIA [Suspect]
     Indication: CROHN'S DISEASE
     Dosage: (200 MG 1X/2 WEEKS, ON 11-DEC-2010 AND 19-JAN-2011 MISSED THE CIMZIA DOSAGE SUBCUTANEOUS)
     Route: 058
     Dates: start: 20100218
  2. COUMADIN [Concomitant]

REACTIONS (2)
  - TREATMENT NONCOMPLIANCE [None]
  - PREGNANCY [None]
